FAERS Safety Report 5613881-0 (Version None)
Quarter: 2008Q1

REPORT INFORMATION
  Report Type: 
  Country: None (occurrence: None)
  Receive Date: 20080205
  Receipt Date: 20080122
  Transmission Date: 20080703
  Serious: Yes (Other)
  Sender: FDA-Public Use
  Company Number: US-ELI_LILLY_AND_COMPANY-US200801004562

PATIENT
  Sex: Female

DRUGS (13)
  1. CYMBALTA [Suspect]
     Indication: DEPRESSION
     Dosage: 60 MG, DAILY (1/D)
     Dates: start: 20050901, end: 20070601
  2. CYMBALTA [Suspect]
     Dosage: 60 MG, UNK
     Dates: start: 20071101
  3. ATIVAN [Concomitant]
  4. BACTRIM [Concomitant]
     Indication: DENTAL TREATMENT
  5. LOVENOX [Concomitant]
  6. HYDROCODONE BITARTRATE AND ACETAMINOPHEN [Concomitant]
     Indication: TUMOUR PAIN
     Dosage: 7.5/750
  7. ADVAIR DISKUS 100/50 [Concomitant]
     Dosage: 25/250
  8. PRILOSEC [Concomitant]
  9. NEXIUM [Concomitant]
  10. CLINDAMYCIN HCL [Concomitant]
  11. ALBUTEROL [Concomitant]
  12. COMBIVENT [Concomitant]
  13. DUONEB [Concomitant]

REACTIONS (17)
  - ABNORMAL BEHAVIOUR [None]
  - ANXIETY [None]
  - CONVULSION [None]
  - DELUSIONAL PERCEPTION [None]
  - HAEMATEMESIS [None]
  - HOT FLUSH [None]
  - INSOMNIA [None]
  - LOSS OF CONSCIOUSNESS [None]
  - MANIA [None]
  - MOOD SWINGS [None]
  - PANIC REACTION [None]
  - PARANOIA [None]
  - RETCHING [None]
  - SOMNOLENCE [None]
  - SUICIDAL IDEATION [None]
  - TREMOR [None]
  - VISUAL DISTURBANCE [None]
